FAERS Safety Report 8260085-1 (Version None)
Quarter: 2012Q1

REPORT INFORMATION
  Report Type: 
  Country: None (occurrence: None)
  Receive Date: 20120327
  Receipt Date: 20080515
  Transmission Date: 20120608
  Serious: Yes (Other)
  Sender: FDA-Public Use
  Company Number: PHEH2008US03995

PATIENT

DRUGS (2)
  1. GLEEVEC [Suspect]
     Indication: CHRONIC MYELOID LEUKAEMIA
     Dosage: 400MG
  2. HYDREA [Concomitant]

REACTIONS (3)
  - SPLENOMEGALY [None]
  - WHITE BLOOD CELL COUNT INCREASED [None]
  - PLATELET COUNT INCREASED [None]
